FAERS Safety Report 19544052 (Version 1)
Quarter: 2021Q3

REPORT INFORMATION
  Report Type: Spontaneous
  Country: US (occurrence: US)
  Receive Date: 20210713
  Receipt Date: 20210713
  Transmission Date: 20211014
  Serious: No
  Sender: FDA-Public Use
  Company Number: US-FERRINGPH-2021FE02904

PATIENT
  Sex: Male
  Weight: 97.51 kg

DRUGS (1)
  1. ZOMACTON [Suspect]
     Active Substance: SOMATROPIN
     Indication: GROWTH HORMONE DEFICIENCY
     Dosage: UNK
     Route: 065
     Dates: start: 202010

REACTIONS (3)
  - Suspected product quality issue [Unknown]
  - Insulin-like growth factor increased [Unknown]
  - Suspected counterfeit product [None]

NARRATIVE: CASE EVENT DATE: 2021
